FAERS Safety Report 8272693-2 (Version None)
Quarter: 2012Q2

REPORT INFORMATION
  Report Type: 
  Country: None (occurrence: None)
  Receive Date: 20120411
  Receipt Date: 20120330
  Transmission Date: 20120825
  Serious: Yes (Hospitalization)
  Sender: FDA-Public Use
  Company Number: PT-BAXTER-2012BAX001505

PATIENT
  Sex: Female

DRUGS (2)
  1. EXTRANEAL [Suspect]
     Route: 033
  2. PHYSIONEAL 40 GLUCOSE 1,36% P/V / 13,6 MG/ML [Suspect]
     Route: 033
     Dates: start: 20080917

REACTIONS (1)
  - PERITONITIS BACTERIAL [None]
